FAERS Safety Report 20686268 (Version 1)
Quarter: 2022Q2

REPORT INFORMATION
  Report Type: Spontaneous
  Country: ZA (occurrence: US)
  Receive Date: 20220407
  Receipt Date: 20220407
  Transmission Date: 20220721
  Serious: No
  Sender: FDA-Public Use
  Company Number: ZA-PFIZER INC-202100939349

PATIENT
  Age: 14 Year
  Sex: Male

DRUGS (6)
  1. ZOLOFT [Suspect]
     Active Substance: SERTRALINE HYDROCHLORIDE
     Dosage: 100 MG, DAILY
  2. ZOLOFT [Suspect]
     Active Substance: SERTRALINE HYDROCHLORIDE
     Dosage: 25 MG DAILY , STARTED TAKING FOR THE PAST 6 DAYS
  3. ZOLOFT [Suspect]
     Active Substance: SERTRALINE HYDROCHLORIDE
     Dosage: 11.5 MG IN THE BEGINNING 2 DAYS
  4. ZOLOFT [Suspect]
     Active Substance: SERTRALINE HYDROCHLORIDE
     Dosage: WEANING OFF OVER 10 DAYS PERIOD
  5. CLONIDINE [Concomitant]
     Active Substance: CLONIDINE
     Dosage: 0.1 MG, DAILY
  6. DEXTROAMPHET SACCHARAT, AMPHET ASPARTATE, DEXTROAMPHET SULFATE AND AMP [Concomitant]
     Active Substance: AMPHETAMINE ASPARTATE\AMPHETAMINE SULFATE\DEXTROAMPHETAMINE SACCHARATE\DEXTROAMPHETAMINE SULFATE
     Dosage: 25 MG, DAILY

REACTIONS (1)
  - Drug withdrawal headache [Unknown]
